FAERS Safety Report 5746202-3 (Version None)
Quarter: 2008Q2

REPORT INFORMATION
  Report Type: 
  Country: None (occurrence: None)
  Receive Date: 20080522
  Receipt Date: 20080522
  Transmission Date: 20081010
  Serious: Yes (Life-Threatening, Hospitalization, Other)
  Sender: FDA-Public Use
  Company Number: None

PATIENT
  Age: 64 Year
  Sex: Male
  Weight: 108.8633 kg

DRUGS (1)
  1. HEPARIN [Suspect]
     Indication: ANTICOAGULANT THERAPY
     Dates: start: 20080313, end: 20080324

REACTIONS (1)
  - DRUG HYPERSENSITIVITY [None]
